FAERS Safety Report 7809422-X (Version None)
Quarter: 2011Q4

REPORT INFORMATION
  Report Type: 
  Country: None (occurrence: None)
  Receive Date: 20111012
  Receipt Date: 20111006
  Transmission Date: 20120403
  Serious: Yes (Other)
  Sender: FDA-Public Use
  Company Number: US-JNJFOC-20060307121

PATIENT
  Sex: Male
  Weight: 98.43 kg

DRUGS (9)
  1. ZYPREXA [Suspect]
     Route: 048
     Dates: start: 20000301
  2. SEROQUEL [Suspect]
     Indication: DEPRESSION
     Route: 065
  3. RISPERDAL [Suspect]
     Route: 048
     Dates: start: 19980801, end: 19980812
  4. ZYPREXA [Suspect]
     Route: 048
     Dates: start: 19980718
  5. RISPERDAL [Suspect]
     Route: 048
     Dates: start: 20020701, end: 20030331
  6. ZYPREXA [Suspect]
     Indication: DEPRESSION
     Route: 048
     Dates: end: 19980906
  7. RISPERDAL [Suspect]
     Indication: DEPRESSION
     Route: 048
     Dates: start: 19980708, end: 19980717
  8. ZYPREXA [Suspect]
     Route: 048
     Dates: start: 19980907
  9. RISPERDAL [Suspect]
     Route: 048
     Dates: start: 19980625

REACTIONS (4)
  - DRUG INEFFECTIVE [None]
  - DIABETES MELLITUS [None]
  - INJURY [None]
  - PSYCHOSEXUAL DISORDER [None]
